FAERS Safety Report 22192601 (Version 1)
Quarter: 2023Q2

REPORT INFORMATION
  Report Type: Report from Study
  Country: US (occurrence: US)
  Receive Date: 20230410
  Receipt Date: 20230410
  Transmission Date: 20230722
  Serious: Yes (Death, Other)
  Sender: FDA-Public Use
  Company Number: US-BRISTOL-MYERS SQUIBB COMPANY-2023-047953

PATIENT

DRUGS (4)
  1. PACLITAXEL [Suspect]
     Active Substance: PACLITAXEL
     Indication: Ductal adenocarcinoma of pancreas
     Dosage: 100-125 MG/M2 (WEEKLY FOR 3 WEEKS/28-DAY CYCLE )  (DAYS 1, 8, AND 15 OF EACH 28-DAY CYCLE)
     Route: 042
  2. PACLITAXEL [Suspect]
     Active Substance: PACLITAXEL
     Dosage: BIWEEKLY 125 OR 100 MG/M2, RESPECTIVELY
     Route: 042
  3. PALBOCICLIB [Suspect]
     Active Substance: PALBOCICLIB
     Indication: Ductal adenocarcinoma of pancreas
     Dosage: RANGE, 50-125 MG/DAY; MODIFIED 3+3 DESIGN; 3/1 SCHEDULE OR CONTINUOUSLY
     Route: 048
  4. PALBOCICLIB [Suspect]
     Active Substance: PALBOCICLIB
     Dosage: DAYS 1 TO 21
     Route: 048

REACTIONS (1)
  - Sepsis [Fatal]
